FAERS Safety Report 9520673 (Version 1)
Quarter: 2013Q3

REPORT INFORMATION
  Report Type: Spontaneous
  Country: US (occurrence: US)
  Receive Date: 20130913
  Receipt Date: 20130913
  Transmission Date: 20140515
  Serious: Yes (Other)
  Sender: FDA-Public Use
  Company Number: US-JNJFOC-20130902457

PATIENT
  Age: 42 Year
  Sex: Male
  Weight: 108.86 kg

DRUGS (2)
  1. ZYRTEC UNSPECIFIED [Suspect]
     Route: 048
  2. ZYRTEC UNSPECIFIED [Suspect]
     Indication: MULTIPLE ALLERGIES
     Dosage: 1 PILL A DAY FOR 7 MONTHS
     Route: 048

REACTIONS (5)
  - Fluid retention [Not Recovered/Not Resolved]
  - Epistaxis [Not Recovered/Not Resolved]
  - Hormone level abnormal [Not Recovered/Not Resolved]
  - Back pain [Not Recovered/Not Resolved]
  - Dizziness [Not Recovered/Not Resolved]
